FAERS Safety Report 7978965-0 (Version None)
Quarter: 2011Q4

REPORT INFORMATION
  Report Type: 
  Country: None (occurrence: None)
  Receive Date: 20111205
  Receipt Date: 20111121
  Transmission Date: 20120403
  Serious: Yes (Death)
  Sender: FDA-Public Use
  Company Number: 2011S1024623

PATIENT
  Age: 87 Year
  Sex: Male

DRUGS (17)
  1. BACTRIM [Concomitant]
  2. DILTIAZEM HCL [Concomitant]
  3. GLYBURIDE [Concomitant]
  4. METFORMIN HCL [Concomitant]
  5. CELEBREX [Concomitant]
  6. OMEPRAZOLE [Concomitant]
  7. DIGOXIN [Suspect]
     Dosage: 0.125 MG;DAILY
  8. FLOMAX [Concomitant]
  9. SINGULAIR [Concomitant]
  10. ACCOLATE [Concomitant]
  11. COUMADIN [Concomitant]
  12. FLOVENT [Concomitant]
  13. LORTAB [Concomitant]
  14. LOVASTATIN [Concomitant]
  15. ALBUTEROL [Concomitant]
  16. COLACE [Concomitant]
  17. LISINOPRIL [Concomitant]

REACTIONS (8)
  - RESPIRATORY FAILURE [None]
  - MENTAL STATUS CHANGES [None]
  - TOXICITY TO VARIOUS AGENTS [None]
  - FALL [None]
  - AGGRESSION [None]
  - ASTHENIA [None]
  - BRADYCARDIA [None]
  - CONFUSIONAL STATE [None]
